FAERS Safety Report 20109922 (Version 1)
Quarter: 2021Q4

REPORT INFORMATION
  Report Type: Spontaneous
  Country: US (occurrence: US)
  Receive Date: 20211124
  Receipt Date: 20211124
  Transmission Date: 20220303
  Serious: Yes (Life-Threatening, Hospitalization)
  Sender: FDA-Public Use
  Company Number: US-JNJFOC-20211133831

PATIENT
  Sex: Male

DRUGS (1)
  1. ZYTIGA [Suspect]
     Active Substance: ABIRATERONE ACETATE
     Indication: Product used for unknown indication
     Route: 048
     Dates: start: 20210820

REACTIONS (7)
  - Pneumonia aspiration [Unknown]
  - Cerebrovascular accident [Unknown]
  - Cellulitis [Unknown]
  - Arthralgia [Unknown]
  - Illness [Unknown]
  - Fall [Unknown]
  - Vomiting [Unknown]
